APPROVED DRUG PRODUCT: LOTENSIN
Active Ingredient: BENAZEPRIL HYDROCHLORIDE
Strength: 20MG
Dosage Form/Route: TABLET;ORAL
Application: N019851 | Product #003 | TE Code: AB
Applicant: VALIDUS PHARMACEUTICALS LLC
Approved: Jun 25, 1991 | RLD: Yes | RS: No | Type: RX